FAERS Safety Report 9065800 (Version 1)
Quarter: 2013Q1

REPORT INFORMATION
  Report Type: Report from Study
  Country: US (occurrence: US)
  Receive Date: 20130131
  Receipt Date: 20130131
  Transmission Date: 20140127
  Serious: Yes (Other)
  Sender: FDA-Public Use
  Company Number: US-ABBOTT-12P-163-1017246-00

PATIENT
  Age: 54 Year
  Sex: Male

DRUGS (16)
  1. HUMIRA [Suspect]
     Indication: CROHN^S DISEASE
     Dates: start: 201009
  2. HUMIRA [Suspect]
     Dates: start: 20121102
  3. SIMVASTATIN [Concomitant]
     Indication: BLOOD CHOLESTEROL INCREASED
     Dosage: 20 MG DAILY
  4. PANTOPRAZOLE [Concomitant]
     Indication: CROHN^S DISEASE
     Dosage: 40 MG DAILY
  5. PANTOPRAZOLE [Concomitant]
     Indication: GASTROOESOPHAGEAL REFLUX DISEASE
  6. HYDROCODONE [Concomitant]
     Indication: PAIN
     Dosage: 7.5 MG THREE TIMES DAILY AS REQUIRED
  7. DOXYCYCLINE [Concomitant]
     Indication: ROSACEA
     Dosage: 100 MG DAILY
  8. OPANA [Concomitant]
     Indication: BACK PAIN
  9. DIAZEPAM [Concomitant]
     Indication: BACK INJURY
     Dosage: DAILY IN MORNING
  10. STOOL SOFTENER [Concomitant]
     Indication: CONSTIPATION
     Dosage: FOR OCCASIONAL CONSTIPATION
  11. VITAMIN B 12 [Concomitant]
     Indication: VITAMIN SUPPLEMENTATION
  12. CYCLOBENZAPRINE [Concomitant]
     Indication: BACK INJURY
     Dosage: AT BEDTIME
  13. SPIRIVA [Concomitant]
     Indication: CHRONIC OBSTRUCTIVE PULMONARY DISEASE
     Dosage: 18 MCG DAILY
     Route: 055
  14. ASPIRIN [Concomitant]
     Indication: PRODUCT USED FOR UNKNOWN INDICATION
     Dosage: 81 MG DAILY
  15. RENSAPRIL HCTZ [Concomitant]
     Indication: BLOOD PRESSURE ABNORMAL
  16. RENSAPRIL HCTZ [Concomitant]
     Dosage: 20-12.5MG 2 TABLETS DAILY
     Dates: start: 201206

REACTIONS (8)
  - Intestinal resection [Not Recovered/Not Resolved]
  - Intestinal obstruction [Not Recovered/Not Resolved]
  - Feeling abnormal [Not Recovered/Not Resolved]
  - Sensation of foreign body [Not Recovered/Not Resolved]
  - Dyspepsia [Not Recovered/Not Resolved]
  - Malaise [Not Recovered/Not Resolved]
  - Crohn^s disease [Not Recovered/Not Resolved]
  - Blood pressure abnormal [Recovered/Resolved]
